FAERS Safety Report 9678818 (Version 7)
Quarter: 2014Q2

REPORT INFORMATION
  Report Type: Spontaneous
  Country: US (occurrence: US)
  Receive Date: 20131108
  Receipt Date: 20140402
  Transmission Date: 20141212
  Serious: Yes (Death, Hospitalization)
  Sender: FDA-Public Use
  Company Number: US-GLAXOSMITHKLINE-A1048923A

PATIENT
  Age: 45 Year
  Sex: Female
  Weight: 56.8 kg

DRUGS (12)
  1. FLOLAN [Suspect]
     Indication: PULMONARY ARTERIAL HYPERTENSION
     Dosage: 80NGKM CONTINUOUS
     Route: 042
     Dates: start: 20131103, end: 20140222
  2. VELETRI [Suspect]
     Indication: PULMONARY ARTERIAL HYPERTENSION
     Route: 065
     Dates: start: 20140214, end: 20140216
  3. TRACLEER [Concomitant]
     Dates: start: 20080619, end: 20140222
  4. REVATIO [Concomitant]
     Dates: start: 20070413, end: 20140222
  5. LASIX [Concomitant]
  6. REGLAN [Concomitant]
  7. ALDACTONE [Concomitant]
  8. LANOXIN [Concomitant]
  9. GABAPENTIN [Concomitant]
  10. KDUR [Concomitant]
  11. NEXIUM [Concomitant]
  12. COUMADIN [Concomitant]

REACTIONS (11)
  - Pulmonary embolism [Recovering/Resolving]
  - Investigation [Unknown]
  - Pneumonia [Not Recovered/Not Resolved]
  - Right ventricular failure [Fatal]
  - Pulmonary hypertension [Fatal]
  - Chest pain [Recovering/Resolving]
  - Abdominal pain [Recovering/Resolving]
  - Muscle spasms [Not Recovered/Not Resolved]
  - Gait disturbance [Not Recovered/Not Resolved]
  - Fatigue [Not Recovered/Not Resolved]
  - Dyspnoea [Not Recovered/Not Resolved]
